FAERS Safety Report 7127843-8 (Version None)
Quarter: 2010Q4

REPORT INFORMATION
  Report Type: 
  Country: None (occurrence: None)
  Receive Date: 20101029
  Receipt Date: 20100624
  Transmission Date: 20110411
  Serious: No
  Sender: FDA-Public Use
  Company Number: US-002353

PATIENT
  Sex: Male
  Weight: 78.9259 kg

DRUGS (7)
  1. FIRMAGON [Suspect]
     Indication: PROSTATE CANCER
     Dosage: 240 MG 1X SUBCUTANEOUS
     Route: 058
     Dates: start: 20100623, end: 20100623
  2. ALTACE [Concomitant]
  3. ASPIRIN [Concomitant]
  4. BETAGAN [Concomitant]
  5. LIPITOR [Concomitant]
  6. UROXATRAL [Concomitant]
  7. XALATAN [Concomitant]

REACTIONS (3)
  - INJECTION SITE DISCOMFORT [None]
  - INJECTION SITE ERYTHEMA [None]
  - INJECTION SITE NODULE [None]
